FAERS Safety Report 15473672 (Version 2)
Quarter: 2018Q4

REPORT INFORMATION
  Report Type: Spontaneous
  Country: CL (occurrence: CL)
  Receive Date: 20181008
  Receipt Date: 20181015
  Transmission Date: 20190205
  Serious: Yes (Death, Other)
  Sender: FDA-Public Use
  Company Number: CL-MYLANLABS-2018M1072068

PATIENT
  Age: 18 Year
  Sex: Female

DRUGS (19)
  1. 6-MERCAPTOPURINE MONOHYDRATE [Concomitant]
     Active Substance: MERCAPTOPURINE
     Indication: ACUTE LYMPHOCYTIC LEUKAEMIA
     Dosage: DAYS 1-14 AND 29-42 AS APART OF CONSOLIDATION REGIMEN
     Route: 048
  2. METHOTREXATE. [Concomitant]
     Active Substance: METHOTREXATE
     Indication: ACUTE LYMPHOCYTIC LEUKAEMIA
     Dosage: 15 MG, ON DAY 8 AND 29 (AS A PART OF INDUCTION REGIMEN) AND ON DAYS 1, 8, 15 AND 22 AS A PART OF THE
     Route: 037
  3. DEXAMETHASONE. [Concomitant]
     Active Substance: DEXAMETHASONE
     Dosage: 10 MG/M2, FROM DAYS 1-7 AND 15-21 AS A PART OF LATE INTENSIFICATION I
     Route: 048
  4. DEXAMETHASONE. [Concomitant]
     Active Substance: DEXAMETHASONE
     Dosage: 6 MG/M2, ON DAYS 1-5 AS A PART OF INTERIM MAINTENANCE II
     Route: 048
  5. METHOTREXATE. [Concomitant]
     Active Substance: METHOTREXATE
     Dosage: 20 MG/M2, ONE DAY A WEEK IN MAINTENANCE PHASE
     Route: 048
  6. DEXAMETHASONE. [Concomitant]
     Active Substance: DEXAMETHASONE
     Indication: ACUTE LYMPHOCYTIC LEUKAEMIA
     Dosage: 10 MG/M2, FROM DAYS 1-14 (AS A PART OF INDUCTION REGIMEN)
     Route: 042
  7. 6-MERCAPTOPURINE MONOHYDRATE [Concomitant]
     Active Substance: MERCAPTOPURINE
     Dosage: ON DAYS 1 TO 7 AND 15 TO 21 AS A PART OF INTERIM MAINTENANCE PHASE I
     Route: 048
  8. DAUNORUBICIN [Concomitant]
     Active Substance: DAUNORUBICIN
     Indication: ACUTE LYMPHOCYTIC LEUKAEMIA
     Dosage: 25 MG/M2, ON DAYS 1, 8, 15, 22 (AS A PART OF INDUCTION REGIMEN)
     Route: 042
  9. CYTARABINE. [Suspect]
     Active Substance: CYTARABINE
     Dosage: 75 MG/M2, ON DAYS 1-4, 8-11, 29-32, ON DAYS 36-39 AS A PART OF THE CONSOLIDATION REGIMEN AND FOR 4 D
     Route: 042
  10. METHOTREXATE. [Concomitant]
     Active Substance: METHOTREXATE
     Dosage: 2000 MG/M2, ON DAYS 1, 15, 29, 43 AS A PART OF INTERIM MAINTENANCE PHASE I
     Route: 042
  11. L-ASPARAGINASE [Concomitant]
     Active Substance: ASPARAGINASE
     Indication: ACUTE LYMPHOCYTIC LEUKAEMIA
     Dosage: 6,000 U/M2 ON DAYS 15, 17, 19, 22, 24, 26 AND 29 AS APART OF INDUCTION REGIMEN, ON DAYS 15, 17, 1...
     Route: 030
  12. METHOTREXATE. [Concomitant]
     Active Substance: METHOTREXATE
     Dosage: 100 MG/M2, ON DAYS 1, 11, 21, 31 AND 41 OF INTERIM MAINTENANCE II
     Route: 042
  13. BETAMETHASONE. [Concomitant]
     Active Substance: BETAMETHASONE
     Indication: ACUTE LYMPHOCYTIC LEUKAEMIA
     Dosage: 4 MG, ON DAY 8 AND 29 (AS A PART OF INDUCTION REGIMEN), ON DAYS 1, 8, 15 AND 22 AS A PART OF THE CON
     Route: 037
  14. CYCLOPHOSPHAMIDE. [Concomitant]
     Active Substance: CYCLOPHOSPHAMIDE
     Indication: ACUTE LYMPHOCYTIC LEUKAEMIA
     Dosage: ON DAYS 1 AND 29 AS APART OF CONSOLIDATION REGIMEN, ON DAY 29 AS A PART OF LATE INTENSIFICATION I.
     Route: 042
  15. DOXORUBICIN [Concomitant]
     Active Substance: DOXORUBICIN
     Indication: ACUTE LYMPHOCYTIC LEUKAEMIA
     Dosage: DAYS 1, 8 AND 15 AS A PART OF LATE INTENSIFICATION I
     Route: 042
  16. CYTARABINE. [Suspect]
     Active Substance: CYTARABINE
     Indication: ACUTE LYMPHOCYTIC LEUKAEMIA
     Dosage: ON DAY 8 AND 29 AS A PART OF INDUCTION REGIMEN, ON DAYS 1, 8, 15 AND 22 AS A PART OF THE CONSOLID
     Route: 037
  17. VINCRISTINE [Concomitant]
     Active Substance: VINCRISTINE
     Indication: ACUTE LYMPHOCYTIC LEUKAEMIA
     Dosage: ON DAYS 1, 8, 15, 22 (AS A PART OF INDUCTION REGIMEN), ON DAYS 15, 22, 43 AND 50 AS A PART OF CON...
     Route: 042
  18. 6-MERCAPTOPURINE MONOHYDRATE [Concomitant]
     Active Substance: MERCAPTOPURINE
     Dosage: AS A PART OF MAINTENANCE PHASE
  19. THIOGUANINE [Concomitant]
     Active Substance: THIOGUANINE
     Indication: ACUTE LYMPHOCYTIC LEUKAEMIA
     Dosage: ON DAYS 29 TO 42 OF LATE INTENSIFICATION I
     Route: 048

REACTIONS (10)
  - Subacute combined cord degeneration [Fatal]
  - Quadriplegia [Unknown]
  - Blindness [Unknown]
  - Papilloedema [Unknown]
  - Respiratory failure [Fatal]
  - Radiculopathy [Unknown]
  - Myelopathy [Unknown]
  - Urinary incontinence [Unknown]
  - Motor dysfunction [Unknown]
  - Dysphagia [Unknown]
